FAERS Safety Report 19456713 (Version 1)
Quarter: 2021Q2

REPORT INFORMATION
  Report Type: Spontaneous
  Country: NL (occurrence: NL)
  Receive Date: 20210624
  Receipt Date: 20210624
  Transmission Date: 20210717
  Serious: Yes (Life-Threatening, Hospitalization, Other)
  Sender: FDA-Public Use
  Company Number: NL-AUROBINDO-AUR-APL-2021-025063

PATIENT
  Age: 87 Year
  Sex: Female
  Weight: 65 kg

DRUGS (7)
  1. AMIODARONE HCL 200MG TABLETS [Suspect]
     Active Substance: AMIODARONE HYDROCHLORIDE
     Indication: PRODUCT USED FOR UNKNOWN INDICATION
     Dosage: 1X PER DAG,INMIDDELS GESTOPT NA ZH OPNAME BIJ TROMBOTISCHE TROMBOCYTOPENIE PURPURA
     Route: 065
     Dates: start: 2020, end: 20210412
  2. ASTRAZENECA COVID?19 VACCINE [Suspect]
     Active Substance: AZD-1222
     Indication: COVID-19 IMMUNISATION
     Dosage: UNK
     Route: 065
     Dates: start: 20210308
  3. MAAGZUURTABLETTEN HTP PANTOPRAZOL [Concomitant]
     Active Substance: PANTOPRAZOLE SODIUM
     Indication: PRODUCT USED FOR UNKNOWN INDICATION
     Dosage: MAAGSAPRESISTENTE TABLET, 20 MG (MILLIGRAM)
     Route: 065
  4. AMLODIPINE VALSARTAN RICHTER [Concomitant]
     Indication: PRODUCT USED FOR UNKNOWN INDICATION
     Dosage: TABLET, 10/160 MG (MILLIGRAM)
     Route: 065
  5. ATORVASTATIN [Concomitant]
     Active Substance: ATORVASTATIN
     Indication: PRODUCT USED FOR UNKNOWN INDICATION
     Dosage: KAUWTABLET, 20 MG (MILLIGRAM)
     Route: 065
  6. SOTALOL. [Suspect]
     Active Substance: SOTALOL
     Dosage: UNK
     Route: 065
  7. XARELTO [Concomitant]
     Active Substance: RIVAROXABAN
     Indication: PRODUCT USED FOR UNKNOWN INDICATION
     Dosage: TABLET, 10 MG (MILLIGRAM)
     Route: 065

REACTIONS (5)
  - Dyspnoea [Recovering/Resolving]
  - Thrombotic thrombocytopenic purpura [Recovering/Resolving]
  - Haemolytic anaemia [Recovering/Resolving]
  - Asthenia [Recovering/Resolving]
  - Melaena [Recovering/Resolving]
